FAERS Safety Report 7769984-8 (Version None)
Quarter: 2011Q3

REPORT INFORMATION
  Report Type: 
  Country: None (occurrence: None)
  Receive Date: 20110922
  Receipt Date: 20100825
  Transmission Date: 20111222
  Serious: No
  Sender: FDA-Public Use
  Company Number: US-ASTRAZENECA-2007UW25156

PATIENT
  Age: 20300 Day
  Sex: Male
  Weight: 99.8 kg

DRUGS (17)
  1. SEROQUEL [Suspect]
     Indication: PANIC ATTACK
     Dosage: 25 MG EVERY MORNING, 2 TABLETS EVERY NOON, 100 MG EVERY NIGHT
     Route: 048
     Dates: start: 20040802
  2. SEROQUEL [Suspect]
     Dosage: 50 MG TO 100 MG
     Route: 048
     Dates: start: 20040920, end: 20070501
  3. SEROQUEL [Suspect]
     Dosage: 50 MG TO 100 MG
     Route: 048
     Dates: start: 20040920, end: 20070501
  4. PAXIL [Concomitant]
     Dates: start: 20030923
  5. CAPTOPRIL [Concomitant]
     Dates: start: 20020831
  6. TRAZODONE HYDROCHLORIDE [Concomitant]
     Dates: start: 20040601, end: 20070501
  7. TRAZODONE HYDROCHLORIDE [Concomitant]
     Dates: start: 20060630
  8. CLONAZEPAM [Concomitant]
     Dates: start: 20040729
  9. REMERON [Concomitant]
     Dates: start: 20040615
  10. TRICOR [Concomitant]
     Dates: start: 20020805
  11. SEROQUEL [Suspect]
     Indication: ANXIETY
     Dosage: 25 MG EVERY MORNING, 2 TABLETS EVERY NOON, 100 MG EVERY NIGHT
     Route: 048
     Dates: start: 20040802
  12. SEROQUEL [Suspect]
     Indication: DEPRESSION
     Dosage: 25 MG EVERY MORNING, 2 TABLETS EVERY NOON, 100 MG EVERY NIGHT
     Route: 048
     Dates: start: 20040802
  13. CYMBALTA [Concomitant]
     Dates: start: 20060501, end: 20061001
  14. SEROQUEL [Suspect]
     Dosage: 50 MG TO 100 MG
     Route: 048
     Dates: start: 20040920, end: 20070501
  15. PAXIL [Concomitant]
     Dosage: 10 MG - 20 MG EVERY MORNING
     Dates: start: 19960101
  16. XANAX [Concomitant]
     Dates: start: 20020508
  17. PRAVASTATIN [Concomitant]
     Dates: start: 20060515

REACTIONS (6)
  - DIABETIC COMPLICATION [None]
  - TYPE 2 DIABETES MELLITUS [None]
  - BLOOD CHOLESTEROL INCREASED [None]
  - OBESITY [None]
  - HYPERLIPIDAEMIA [None]
  - BLOOD TRIGLYCERIDES INCREASED [None]
